FAERS Safety Report 25064835 (Version 1)
Quarter: 2025Q1

REPORT INFORMATION
  Report Type: Spontaneous
  Country: CN (occurrence: CN)
  Receive Date: 20250311
  Receipt Date: 20250311
  Transmission Date: 20250409
  Serious: Yes (Hospitalization)
  Sender: DR REDDYS
  Company Number: None

PATIENT
  Age: 46 Year
  Sex: Male
  Weight: 80 kg

DRUGS (11)
  1. CLOPIDOGREL BISULFATE [Suspect]
     Active Substance: CLOPIDOGREL BISULFATE
     Indication: Antiplatelet therapy
     Route: 048
     Dates: start: 20240413, end: 20240415
  2. ASPIRIN [Suspect]
     Active Substance: ASPIRIN
     Indication: Antiplatelet therapy
     Dosage: ENTERIC-COATED ASPIRIN TABLETS
     Route: 048
     Dates: start: 20240413, end: 20240415
  3. INSULIN NOS [Concomitant]
     Active Substance: INSULIN NOS
     Indication: Blood glucose increased
     Route: 058
     Dates: start: 202404, end: 202404
  4. INSULIN NOS [Concomitant]
     Active Substance: INSULIN NOS
     Dates: start: 202404
  5. URAPIDIL HYDROCHLORIDE [Concomitant]
     Active Substance: URAPIDIL HYDROCHLORIDE
     Indication: Hypertension
  6. ATORVASTATIN CALCIUM [Concomitant]
     Active Substance: ATORVASTATIN CALCIUM
     Indication: Lipids abnormal
     Dosage: 20 MG, ONCE NIGHTLY, VIA GASTRIC TUBE
  7. ESOMEPRAZOLE SODIUM [Concomitant]
     Active Substance: ESOMEPRAZOLE SODIUM
     Indication: Antacid therapy
     Route: 042
  8. AMLODIPINE BESYLATE [Concomitant]
     Active Substance: AMLODIPINE BESYLATE
     Indication: Hypertension
  9. CEFOPERAZONE SODIUM [Concomitant]
     Active Substance: CEFOPERAZONE SODIUM
     Indication: Pneumonia
     Route: 042
     Dates: start: 20240414
  10. SULBACTAM SODIUM [Concomitant]
     Active Substance: SULBACTAM SODIUM
     Indication: Pneumonia
     Route: 042
     Dates: start: 20240414
  11. BUTYLPHTHALIDE [Concomitant]
     Active Substance: BUTYLPHTHALIDE
     Indication: Nervous system disorder prophylaxis
     Route: 042
     Dates: start: 20240412

REACTIONS (5)
  - Cerebral haemorrhage [Recovering/Resolving]
  - Basal ganglia haemorrhage [Recovering/Resolving]
  - Intracranial pressure increased [Recovering/Resolving]
  - Brain oedema [Recovering/Resolving]
  - Haemorrhagic transformation stroke [Recovering/Resolving]

NARRATIVE: CASE EVENT DATE: 20240415
